FAERS Safety Report 23823080 (Version 2)
Quarter: 2024Q2

REPORT INFORMATION
  Report Type: Spontaneous
  Country: US (occurrence: US)
  Receive Date: 20240507
  Receipt Date: 20240512
  Transmission Date: 20240716
  Serious: Yes (Other)
  Sender: FDA-Public Use
  Company Number: US-ABBVIE-5747450

PATIENT
  Age: 38 Year
  Sex: Male
  Weight: 99 kg

DRUGS (2)
  1. HUMIRA [Suspect]
     Active Substance: ADALIMUMAB
     Indication: Rheumatoid arthritis
     Dosage: FORM STRENGTH WAS 40 MILLIGRMAS
     Route: 058
     Dates: start: 202203, end: 20231001
  2. HUMIRA [Suspect]
     Active Substance: ADALIMUMAB
     Indication: Acute myeloid leukaemia

REACTIONS (4)
  - Acute myeloid leukaemia [Recovered/Resolved]
  - Unevaluable event [Recovered/Resolved]
  - Bite [Recovered/Resolved]
  - Arthropod bite [Recovered/Resolved]

NARRATIVE: CASE EVENT DATE: 20230401
